FAERS Safety Report 12745677 (Version 1)
Quarter: 2016Q3

REPORT INFORMATION
  Report Type: Other
  Country: JP (occurrence: JP)
  Receive Date: 20160915
  Receipt Date: 20160915
  Transmission Date: 20161109
  Serious: Yes (Other)
  Sender: FDA-Public Use
  Company Number: JP-ACTELION-A-CH2016-134810

PATIENT
  Age: 40 Year
  Sex: Male
  Weight: 67 kg

DRUGS (2)
  1. EPOPROSTENOL ACT [Suspect]
     Active Substance: EPOPROSTENOL
     Indication: PULMONARY VENO-OCCLUSIVE DISEASE
     Dosage: 5 NG/KG, PER MIN
     Route: 042
  2. EPOPROSTENOL ACT [Suspect]
     Active Substance: EPOPROSTENOL
     Dosage: 0.5 NG/KG, PER MIN
     Route: 042

REACTIONS (5)
  - Concomitant disease aggravated [Recovering/Resolving]
  - Oxygen saturation decreased [Recovering/Resolving]
  - Exercise tolerance decreased [Unknown]
  - Dyspnoea [Recovering/Resolving]
  - Hypoxia [Recovering/Resolving]
